FAERS Safety Report 14679330 (Version 6)
Quarter: 2023Q2

REPORT INFORMATION
  Report Type: Spontaneous
  Country: US (occurrence: US)
  Receive Date: 20180326
  Receipt Date: 20230628
  Transmission Date: 20230722
  Serious: No
  Sender: FDA-Public Use
  Company Number: US-PFIZER INC-2018057108

PATIENT
  Age: 59 Year
  Sex: Female

DRUGS (3)
  1. XELJANZ [Suspect]
     Active Substance: TOFACITINIB CITRATE
     Indication: Rheumatoid arthritis
     Dosage: 1 TABLET (5 MG TOTAL) TWICE DAILY
     Route: 048
     Dates: start: 201608
  2. XELJANZ [Suspect]
     Active Substance: TOFACITINIB CITRATE
     Dosage: 1 TABLET (5 MG TOTAL) TWICE DAILY
     Route: 048
     Dates: start: 201708
  3. XELJANZ [Suspect]
     Active Substance: TOFACITINIB CITRATE
     Dosage: 1 TABLET (5 MG TOTAL) TWICE DAILY
     Route: 048
     Dates: start: 201711

REACTIONS (3)
  - Cystitis [Unknown]
  - Urinary tract infection [Unknown]
  - Dysuria [Unknown]
